FAERS Safety Report 15688015 (Version 1)
Quarter: 2018Q4

REPORT INFORMATION
  Report Type: Spontaneous
  Country: JP (occurrence: JP)
  Receive Date: 20181205
  Receipt Date: 20181205
  Transmission Date: 20190205
  Serious: Yes (Hospitalization)
  Sender: FDA-Public Use
  Company Number: JP-AMGEN-JPNSP2018094720

PATIENT
  Age: 79 Year
  Sex: Female
  Weight: 43 kg

DRUGS (14)
  1. KYPROLIS [Suspect]
     Active Substance: CARFILZOMIB
     Dosage: 35 MG, UNK
     Route: 041
     Dates: start: 20180612, end: 20180613
  2. LENADEX [Concomitant]
     Active Substance: DEXAMETHASONE ACETATE
     Indication: PLASMA CELL MYELOMA
     Dosage: 4 MG, EVERYDAY
     Route: 048
     Dates: start: 20180605, end: 20180620
  3. KYPROLIS [Suspect]
     Active Substance: CARFILZOMIB
     Indication: PLASMA CELL MYELOMA
     Dosage: 26 MG/DAY
     Route: 041
     Dates: start: 20180605, end: 20180606
  4. VESICARE [Concomitant]
     Active Substance: SOLIFENACIN SUCCINATE
     Dosage: 5 MG, EVERYDAY
     Route: 048
  5. REVLIMID [Concomitant]
     Active Substance: LENALIDOMIDE
     Indication: PLASMA CELL MYELOMA
     Dosage: 10 MG, EVERYDAY
     Route: 048
     Dates: start: 20180605, end: 20180619
  6. ASPIRIN. [Concomitant]
     Active Substance: ASPIRIN
     Dosage: 100 MG, EVERYDAY
     Route: 048
  7. KYPROLIS [Suspect]
     Active Substance: CARFILZOMIB
     Dosage: 35 MG/DAY
     Route: 041
     Dates: start: 20180619, end: 20180619
  8. ASTRIC [Concomitant]
     Active Substance: ACYCLOVIR
     Dosage: 0.3 G, EVERYDAY
     Route: 048
  9. WARKMIN [Concomitant]
     Active Substance: ALFACALCIDOL
     Dosage: 1 UG, EVERYDAY
     Route: 048
  10. LANSOPRAZOLE. [Concomitant]
     Active Substance: LANSOPRAZOLE
     Dosage: 15 MG, EVERYDAY
     Route: 048
  11. MAGMITT [Concomitant]
     Active Substance: MAGNESIUM OXIDE
     Dosage: 330 MG, Q8H
     Route: 048
  12. LANSOPRAZOLE. [Concomitant]
     Active Substance: LANSOPRAZOLE
     Dosage: 15 MG, EVERYDAY
     Route: 048
  13. DAIPHEN [Concomitant]
     Active Substance: SULFAMETHOXAZOLE\TRIMETHOPRIM
     Dosage: UNK
     Route: 048
  14. CALONAL [Concomitant]
     Active Substance: ACETAMINOPHEN
     Dosage: 400 MG, Q8H
     Route: 048

REACTIONS (3)
  - Eczema [Recovered/Resolved]
  - Renal disorder [Recovered/Resolved]
  - Oedema [Unknown]

NARRATIVE: CASE EVENT DATE: 20180616
